FAERS Safety Report 4676511-0 (Version None)
Quarter: 2005Q2

REPORT INFORMATION
  Report Type: 
  Country: None (occurrence: None)
  Receive Date: 20050525
  Receipt Date: 20050516
  Transmission Date: 20051028
  Serious: Yes (Hospitalization)
  Sender: FDA-Public Use
  Company Number: 2005076003

PATIENT
  Age: 74 Year
  Sex: Male

DRUGS (5)
  1. TOTALIP (ATORVASTATIN) [Suspect]
     Indication: HYPERCHOLESTEROLAEMIA
     Dosage: 10 MG (10 MG, 1 IN 1 D), ORAL
     Route: 048
     Dates: start: 20050405, end: 20050415
  2. ALLOPURINOL [Concomitant]
  3. CARDIOASPIRIN (ACETYLSALICYLIC ACID) [Concomitant]
  4. FINASTERIDE [Concomitant]
  5. KARVEZIDE (HYDROCHLOROTHIAZIDE, IRBESARTAN) [Concomitant]

REACTIONS (2)
  - MYALGIA [None]
  - NEUROPATHIC PAIN [None]
